FAERS Safety Report 5972170-5 (Version None)
Quarter: 2008Q4

REPORT INFORMATION
  Report Type: 
  Country: None (occurrence: None)
  Receive Date: 20081201
  Receipt Date: 20071001
  Transmission Date: 20090506
  Serious: No
  Sender: FDA-Public Use
  Company Number: US-TEVA-162346USA

PATIENT
  Sex: Female
  Weight: 62.652 kg

DRUGS (3)
  1. SALBUTAMOL SULFATE INHALATION, 0.09 MG [Suspect]
     Dosage: 2 PUFFS  4TIMES PER DAY AND AS NEEDED
     Route: 055
     Dates: start: 20070801
  2. ATORVASTATIN CALCIUM [Suspect]
  3. BECLOMETHASONE DIPROPIONATE [Concomitant]

REACTIONS (1)
  - DRUG INEFFECTIVE [None]
